FAERS Safety Report 8927193 (Version 1)
Quarter: 2012Q4

REPORT INFORMATION
  Report Type: 
  Country: BR (occurrence: BR)
  Receive Date: 20121127
  Receipt Date: 20121127
  Transmission Date: 20130627
  Serious: Yes (Other)
  Sender: FDA-Public Use
  Company Number: BR-BAYER-2012-122867

PATIENT
  Age: 26 Year
  Sex: Female
  Weight: 69 kg

DRUGS (2)
  1. QLAIRA [Suspect]
     Indication: POLYCYSTIC OVARIAN SYNDROME
     Dosage: 1 DF, QD
     Route: 048
     Dates: start: 201209, end: 201211
  2. RESFENOL [Concomitant]
     Indication: FLU
     Dosage: 1 DF, TID
     Route: 048
     Dates: start: 201211, end: 201211

REACTIONS (5)
  - Metrorrhagia [Recovered/Resolved]
  - Weight decreased [Recovered/Resolved]
  - Drug dose omission [None]
  - Incorrect drug administration duration [None]
  - Off label use [None]
